FAERS Safety Report 6516410-2 (Version None)
Quarter: 2009Q4

REPORT INFORMATION
  Report Type: 
  Country: None (occurrence: None)
  Receive Date: 20091223
  Receipt Date: 20091218
  Transmission Date: 20100525
  Serious: Yes (Other)
  Sender: FDA-Public Use
  Company Number: B0609361A

PATIENT
  Age: 34 Year
  Sex: Female
  Weight: 79 kg

DRUGS (5)
  1. WELLBUTRIN SR [Suspect]
     Indication: DRUG USE FOR UNKNOWN INDICATION
     Dosage: 1TAB IN THE MORNING
     Route: 065
  2. LAMICTAL [Suspect]
     Indication: DRUG USE FOR UNKNOWN INDICATION
     Dosage: 100MG IN THE MORNING
     Route: 065
  3. FERRETAB [Suspect]
     Indication: DRUG USE FOR UNKNOWN INDICATION
     Route: 065
  4. PANTOPRAZOLE [Suspect]
     Indication: DRUG USE FOR UNKNOWN INDICATION
     Dosage: 20MG IN THE MORNING
     Route: 065
  5. TRAZODONE HCL [Suspect]
     Indication: DRUG USE FOR UNKNOWN INDICATION
     Dosage: 250MG PER DAY

REACTIONS (2)
  - DEAFNESS [None]
  - SUDDEN HEARING LOSS [None]
